FAERS Safety Report 5068857-1 (Version None)
Quarter: 2006Q3

REPORT INFORMATION
  Report Type: 
  Country: None (occurrence: None)
  Receive Date: 20060802
  Receipt Date: 20060505
  Transmission Date: 20061208
  Serious: Yes (Hospitalization)
  Sender: FDA-Public Use
  Company Number: US-BRISTOL-MYERS SQUIBB COMPANY-13369798

PATIENT
  Age: 36 Year
  Sex: Female
  Weight: 70 kg

DRUGS (7)
  1. COUMADIN [Suspect]
     Indication: AORTIC VALVE REPLACEMENT
  2. COUMADIN [Suspect]
     Route: 042
  3. TOPROL-XL [Concomitant]
  4. XANAX [Concomitant]
     Dates: start: 20060427
  5. MIRALAX [Concomitant]
  6. PERCOCET [Concomitant]
     Dosage: 1 TO 2 TABLETS
  7. PHENERGAN HCL [Concomitant]
     Dosage: 12.5 MG EVERY 4 TO 6 HR

REACTIONS (5)
  - DIARRHOEA [None]
  - HAEMORRHOIDS [None]
  - INTERNATIONAL NORMALISED RATIO ABNORMAL [None]
  - NAUSEA [None]
  - VOMITING [None]
